FAERS Safety Report 11894163 (Version 1)
Quarter: 2016Q1

REPORT INFORMATION
  Report Type: Spontaneous
  Country: US (occurrence: US)
  Receive Date: 20160107
  Receipt Date: 20160107
  Transmission Date: 20160526
  Serious: Yes (Hospitalization, Other)
  Sender: FDA-Public Use
  Company Number: US-TEVA-623593USA

PATIENT
  Age: 89 Year
  Sex: Female

DRUGS (1)
  1. SOTALOL. [Suspect]
     Active Substance: SOTALOL
     Route: 065

REACTIONS (3)
  - Toxicity to various agents [Unknown]
  - Myocardial ischaemia [Unknown]
  - Metabolic encephalopathy [Unknown]
